FAERS Safety Report 20779499 (Version 1)
Quarter: 2022Q2

REPORT INFORMATION
  Report Type: Spontaneous
  Country: ZA (occurrence: ZA)
  Receive Date: 20220503
  Receipt Date: 20220503
  Transmission Date: 20220721
  Serious: Yes (Hospitalization, Other)
  Sender: FDA-Public Use
  Company Number: ZA-ViiV Healthcare Limited-ZA2022GSK070517

PATIENT
  Age: 4 Month
  Sex: Male

DRUGS (8)
  1. ABACAVIR [Suspect]
     Active Substance: ABACAVIR
     Indication: Antiretroviral therapy
     Dosage: UNK
  2. LAMIVUDINE [Suspect]
     Active Substance: LAMIVUDINE
     Indication: Antiretroviral therapy
     Dosage: UNK
  3. LAMIVUDINE [Suspect]
     Active Substance: LAMIVUDINE
     Dosage: 6 ML, BID
  4. ZIDOVUDINE [Suspect]
     Active Substance: ZIDOVUDINE
     Indication: Antiretroviral therapy
     Dosage: 12 ML, BID
  5. LOPINAVIR\RITONAVIR [Suspect]
     Active Substance: LOPINAVIR\RITONAVIR
     Indication: Antiretroviral therapy
     Dosage: UNK
  6. DARUNAVIR [Suspect]
     Active Substance: DARUNAVIR
     Indication: Antiretroviral therapy
     Dosage: 100 MG/ML
     Route: 048
  7. DARUNAVIR [Suspect]
     Active Substance: DARUNAVIR
     Dosage: 200 MG, BID (TABLET)
     Route: 048
  8. RITONAVIR [Suspect]
     Active Substance: RITONAVIR
     Indication: Antiretroviral therapy
     Dosage: 32 MG, BID (0.4 ML)

REACTIONS (6)
  - Viral mutation identified [Unknown]
  - Malnutrition [Recovered/Resolved]
  - Tuberculosis [Recovered/Resolved]
  - Diarrhoea [Recovered/Resolved]
  - Virologic failure [Recovered/Resolved]
  - Off label use [Unknown]
